FAERS Safety Report 7779164-8 (Version None)
Quarter: 2011Q3

REPORT INFORMATION
  Report Type: 
  Country: None (occurrence: None)
  Receive Date: 20110926
  Receipt Date: 20110913
  Transmission Date: 20111222
  Serious: Yes (Life-Threatening, Hospitalization)
  Sender: FDA-Public Use
  Company Number: DE-ELI_LILLY_AND_COMPANY-DE201109003465

PATIENT
  Age: 45 Year
  Sex: Female

DRUGS (1)
  1. ZYPREXA [Suspect]
     Indication: PSYCHOTIC DISORDER
     Dosage: 20 MG, UNKNOWN

REACTIONS (3)
  - INFECTIOUS PERITONITIS [None]
  - PANCREATIC NEOPLASM [None]
  - TUMOUR PERFORATION [None]
